FAERS Safety Report 10182912 (Version 1)
Quarter: 2014Q2

REPORT INFORMATION
  Report Type: Spontaneous
  Country: IT (occurrence: IT)
  Receive Date: 20140520
  Receipt Date: 20140520
  Transmission Date: 20141212
  Serious: Yes (Hospitalization)
  Sender: FDA-Public Use
  Company Number: IT-SA-2014SA062698

PATIENT
  Age: 82 Year
  Sex: Female

DRUGS (6)
  1. TRIATEC [Suspect]
     Indication: HYPERTENSION
     Route: 048
     Dates: start: 20140101, end: 20140423
  2. LASIX [Suspect]
     Indication: HYPERTENSION
     Route: 048
     Dates: start: 20140101, end: 20140423
  3. TILDIEM [Suspect]
     Indication: HYPERTENSION
     Route: 048
     Dates: start: 20140101, end: 20140423
  4. CALCIUM [Concomitant]
     Route: 048
  5. MEDROL [Concomitant]
     Route: 048
  6. COUMADIN [Concomitant]
     Dosage: STRENGTH: 5 MG
     Route: 048

REACTIONS (5)
  - Presyncope [Unknown]
  - Dyspnoea exertional [Unknown]
  - Constipation [Unknown]
  - Hypotension [Unknown]
  - Hyperhidrosis [Unknown]
